FAERS Safety Report 9398270 (Version 1)
Quarter: 2013Q3

REPORT INFORMATION
  Report Type: Spontaneous
  Country: US (occurrence: US)
  Receive Date: 20130712
  Receipt Date: 20130712
  Transmission Date: 20140515
  Serious: No
  Sender: FDA-Public Use
  Company Number: US-GLAXOSMITHKLINE-A0999454A

PATIENT
  Age: 60 Year
  Sex: Female
  Weight: 80.9 kg

DRUGS (1)
  1. FLOVENT [Suspect]
     Indication: ASTHMA
     Dosage: 110MCG UNKNOWN
     Route: 055

REACTIONS (5)
  - Chest pain [Recovering/Resolving]
  - Non-cardiac chest pain [Unknown]
  - Dyspnoea [Unknown]
  - Asthma [Unknown]
  - Product quality issue [Unknown]
